FAERS Safety Report 4827035-9 (Version None)
Quarter: 2005Q4

REPORT INFORMATION
  Report Type: 
  Country: None (occurrence: None)
  Receive Date: 20051014
  Receipt Date: 20050722
  Transmission Date: 20060501
  Serious: No
  Sender: FDA-Public Use
  Company Number: 2005SP000658

PATIENT
  Age: 57 Year
  Sex: Female
  Weight: 56.6996 kg

DRUGS (2)
  1. LUNESTA [Suspect]
     Dosage: 1 MG; HS; ORAL; 2 MG; HS; ORAL
     Route: 048
     Dates: start: 20050101
  2. LUNESTA [Suspect]
     Dosage: 1 MG; HS; ORAL; 2 MG; HS; ORAL
     Route: 048
     Dates: start: 20050401

REACTIONS (3)
  - DRUG INEFFECTIVE [None]
  - DYSGEUSIA [None]
  - MIDDLE INSOMNIA [None]
